FAERS Safety Report 9998210 (Version 2)
Quarter: 2014Q1

REPORT INFORMATION
  Report Type: Spontaneous
  Country: FI (occurrence: FI)
  Receive Date: 20140311
  Receipt Date: 20140311
  Transmission Date: 20141002
  Serious: Yes (Hospitalization)
  Sender: FDA-Public Use
  Company Number: FI-MYLANLABS-2013S1010369

PATIENT
  Age: 49 Year
  Sex: Female

DRUGS (5)
  1. EPINEPHRINE [Suspect]
     Indication: ANAPHYLACTIC REACTION
     Dosage: 0.1MG
     Route: 042
  2. EPINEPHRINE [Suspect]
     Indication: ANAPHYLACTIC REACTION
     Dosage: X2
     Route: 042
  3. METHYLPREDNISOLONE [Suspect]
     Indication: ANAPHYLACTIC REACTION
     Route: 042
  4. IPRATROPIUM BROMIDE [Suspect]
     Route: 055
  5. FENOTEROL HYDROBROMIDE [Suspect]
     Route: 055

REACTIONS (3)
  - Stress cardiomyopathy [Recovered/Resolved]
  - Kounis syndrome [Recovered/Resolved]
  - Drug ineffective [Recovered/Resolved]
